FAERS Safety Report 12494949 (Version 2)
Quarter: 2016Q3

REPORT INFORMATION
  Report Type: Spontaneous
  Country: FR (occurrence: FR)
  Receive Date: 20160624
  Receipt Date: 20160714
  Transmission Date: 20161109
  Serious: Yes (Hospitalization)
  Sender: FDA-Public Use
  Company Number: FR-ROCHE-1780928

PATIENT
  Age: 41 Year
  Sex: Male

DRUGS (16)
  1. ROACTEMRA [Suspect]
     Active Substance: TOCILIZUMAB
     Indication: PYREXIA
     Route: 042
     Dates: start: 20160406
  2. DOLIPRANE [Concomitant]
     Active Substance: ACETAMINOPHEN
     Dosage: IF NEEDED
     Route: 048
  3. IMODIUM [Concomitant]
     Active Substance: LOPERAMIDE HYDROCHLORIDE
     Dosage: MAXIMUM 8 TABLETS A DAY AS REQUIRED
     Route: 048
  4. DICLOFENAC [Concomitant]
     Active Substance: DICLOFENAC
     Dosage: 3 OR 4 APPLICATIONS A DAY 1%
     Route: 003
  5. ROACTEMRA [Suspect]
     Active Substance: TOCILIZUMAB
     Indication: TUMOUR NECROSIS FACTOR RECEPTOR-ASSOCIATED PERIODIC SYNDROME
  6. AMOXICILLINE [Suspect]
     Active Substance: AMOXICILLIN
     Indication: BRONCHITIS
     Route: 048
     Dates: start: 20160408, end: 20160414
  7. VITAMIN B12 [Concomitant]
     Active Substance: CYANOCOBALAMIN
     Route: 030
  8. TOPALGIC (FRANCE) [Concomitant]
     Active Substance: TRAMADOL
     Route: 048
  9. MOPRAL [Concomitant]
     Active Substance: OMEPRAZOLE SODIUM
     Route: 048
  10. PIASCLEDINE [Concomitant]
     Active Substance: AVOCADO OIL\SOYBEAN OIL
     Route: 048
  11. DEDROGYL [Concomitant]
     Active Substance: CALCIFEDIOL
     Route: 048
  12. ROACTEMRA [Suspect]
     Active Substance: TOCILIZUMAB
     Indication: AMYLOIDOSIS
  13. COVERSYL [Concomitant]
     Active Substance: PERINDOPRIL
     Route: 048
  14. DIFFU K [Concomitant]
     Active Substance: POTASSIUM CHLORIDE
     Route: 048
  15. SPASFON (FRANCE) [Concomitant]
     Active Substance: PHLOROGLUCINOL
     Route: 048
  16. SPASMAG ORAL SOLUTION (FRANCE) [Concomitant]
     Route: 048

REACTIONS (1)
  - Lichenoid keratosis [Recovering/Resolving]

NARRATIVE: CASE EVENT DATE: 20160427
